FAERS Safety Report 11895742 (Version 1)
Quarter: 2016Q1

REPORT INFORMATION
  Report Type: Spontaneous
  Country: US (occurrence: US)
  Receive Date: 20160107
  Receipt Date: 20160107
  Transmission Date: 20160526
  Serious: No
  Sender: FDA-Public Use
  Company Number: US-BAYER-2016-002714

PATIENT
  Age: 66 Year
  Sex: Female
  Weight: 65.76 kg

DRUGS (2)
  1. CLARITIN REDITABS [Suspect]
     Active Substance: LORATADINE
     Indication: DERMATITIS
     Dosage: 1 DF, BID
     Route: 048
     Dates: start: 20160104
  2. CLARITIN REDITABS [Suspect]
     Active Substance: LORATADINE
     Indication: RASH

REACTIONS (3)
  - Product use issue [Unknown]
  - Product use issue [Unknown]
  - Drug ineffective for unapproved indication [Unknown]

NARRATIVE: CASE EVENT DATE: 20160104
